FAERS Safety Report 17829528 (Version 1)
Quarter: 2020Q2

REPORT INFORMATION
  Report Type: Spontaneous
  Country: US (occurrence: US)
  Receive Date: 20200527
  Receipt Date: 20200527
  Transmission Date: 20200714
  Serious: Yes (Other)
  Sender: FDA-Public Use
  Company Number: US-TEVA-2020-US-1240237

PATIENT
  Sex: Female

DRUGS (2)
  1. COPAXONE [Suspect]
     Active Substance: GLATIRAMER ACETATE
     Indication: MULTIPLE SCLEROSIS
     Dosage: ROUTE OF ADMINISTRATION UNKNOWN
     Route: 065
     Dates: start: 20200401
  2. PREDNISONE. [Concomitant]
     Active Substance: PREDNISONE
     Dosage: ON TAPERING DOSE NOW
     Route: 048

REACTIONS (9)
  - Vertigo [Unknown]
  - Mobility decreased [Unknown]
  - Balance disorder [Unknown]
  - Gait disturbance [Unknown]
  - Cognitive disorder [Unknown]
  - Drug ineffective [Unknown]
  - Vision blurred [Unknown]
  - Multiple sclerosis relapse [Unknown]
  - Dizziness [Unknown]

NARRATIVE: CASE EVENT DATE: 20200507
